FAERS Safety Report 5785482-5 (Version None)
Quarter: 2008Q2

REPORT INFORMATION
  Report Type: 
  Country: None (occurrence: None)
  Receive Date: 20080605
  Receipt Date: 20080321
  Transmission Date: 20081010
  Serious: No
  Sender: FDA-Public Use
  Company Number: A0710443A

PATIENT

DRUGS (1)
  1. ALLI [Suspect]
     Route: 048

REACTIONS (3)
  - INSOMNIA [None]
  - OEDEMA PERIPHERAL [None]
  - WEIGHT INCREASED [None]
